FAERS Safety Report 18153130 (Version 2)
Quarter: 2020Q3

REPORT INFORMATION
  Report Type: Spontaneous
  Country: US (occurrence: US)
  Receive Date: 20200815
  Receipt Date: 20200827
  Transmission Date: 20201103
  Serious: No
  Sender: FDA-Public Use
  Company Number: US-JNJFOC-20200809438

PATIENT
  Age: 3 Decade
  Sex: Male
  Weight: 90.8 kg

DRUGS (1)
  1. MENS ROGAINE EXTRA STRENGTH [Suspect]
     Active Substance: MINOXIDIL
     Indication: ALOPECIA
     Dosage: BELOW 1 ML, STARTED USING THE PRODUCT SINCE MID TWENTIES. THE PATIENT LAST USED THE PRODUCT ON 13?AU
     Route: 061
     Dates: end: 20200813

REACTIONS (2)
  - Underdose [Unknown]
  - Alopecia [Not Recovered/Not Resolved]
